FAERS Safety Report 5568311-4 (Version None)
Quarter: 2007Q4

REPORT INFORMATION
  Report Type: 
  Country: None (occurrence: None)
  Receive Date: 20071220
  Receipt Date: 20071214
  Transmission Date: 20080405
  Serious: Yes (Death, Other)
  Sender: FDA-Public Use
  Company Number: PH-TYCO HEALTHCARE/MALLINCKRODT-T200701454

PATIENT

DRUGS (3)
  1. OPTIRAY 300 [Suspect]
     Indication: COMPUTERISED TOMOGRAM ABDOMEN
     Dosage: 10 ML, SINGLE
     Route: 042
     Dates: start: 20071116, end: 20071116
  2. OPTIRAY 300 [Suspect]
     Dosage: 5 ML, SINGLE
     Route: 042
     Dates: start: 20071116, end: 20071116
  3. OPTIRAY 300 [Suspect]
     Dosage: 85 ML, SINGLE
     Route: 040
     Dates: start: 20071116, end: 20071117

REACTIONS (6)
  - ANGIOEDEMA [None]
  - BLOOD PRESSURE IMMEASURABLE [None]
  - DYSPNOEA [None]
  - HEART SOUNDS ABNORMAL [None]
  - PULSE ABSENT [None]
  - UNRESPONSIVE TO STIMULI [None]
